FAERS Safety Report 8121767-5 (Version None)
Quarter: 2012Q1

REPORT INFORMATION
  Report Type: 
  Country: None (occurrence: None)
  Receive Date: 20120206
  Receipt Date: 20120124
  Transmission Date: 20120608
  Serious: Yes (Other)
  Sender: FDA-Public Use
  Company Number: 2012PL000017

PATIENT
  Age: 60 Year
  Sex: Male
  Weight: 85 kg

DRUGS (2)
  1. BENDAMUSTINE HYDROCHLORIDE [Suspect]
     Indication: CHRONIC LYMPHOCYTIC LEUKAEMIA
     Dosage: 90 MG/M2;1X; IV
     Route: 042
     Dates: start: 20111219
  2. ZYLOPRIM [Suspect]
     Indication: PRODUCT USED FOR UNKNOWN INDICATION
     Dates: end: 20111220

REACTIONS (5)
  - BLISTER [None]
  - SWELLING [None]
  - RASH ERYTHEMATOUS [None]
  - RASH GENERALISED [None]
  - PRURITUS GENERALISED [None]
